FAERS Safety Report 19915804 (Version 1)
Quarter: 2021Q4

REPORT INFORMATION
  Report Type: Spontaneous
  Country: US (occurrence: US)
  Receive Date: 20211004
  Receipt Date: 20211004
  Transmission Date: 20220303
  Serious: Yes (Other)
  Sender: FDA-Public Use
  Company Number: None

PATIENT
  Age: 65 Year
  Sex: Male
  Weight: 78.3 kg

DRUGS (10)
  1. COZAAR [Suspect]
     Active Substance: LOSARTAN POTASSIUM
     Indication: Hypertension
     Route: 048
     Dates: start: 20210822, end: 20210827
  2. LOPID [Concomitant]
     Active Substance: GEMFIBROZIL
  3. ULORIC [Concomitant]
     Active Substance: FEBUXOSTAT
  4. NIASPAN [Concomitant]
     Active Substance: NIACIN
  5. SYNTHROID [Concomitant]
     Active Substance: LEVOTHYROXINE SODIUM
  6. INDAPAMIDE [Concomitant]
     Active Substance: INDAPAMIDE
  7. LISINOPRIL [Concomitant]
     Active Substance: LISINOPRIL
  8. ACIPHEX [Concomitant]
     Active Substance: RABEPRAZOLE SODIUM
  9. WELCHOL [Concomitant]
     Active Substance: COLESEVELAM HYDROCHLORIDE
  10. FISH OIL [Concomitant]
     Active Substance: FISH OIL

REACTIONS (4)
  - Product quality issue [None]
  - Blood pressure decreased [None]
  - Muscular weakness [None]
  - Syncope [None]

NARRATIVE: CASE EVENT DATE: 20210825
